FAERS Safety Report 9924068 (Version 1)
Quarter: 2014Q1

REPORT INFORMATION
  Report Type: Spontaneous
  Country: DE (occurrence: DE)
  Receive Date: 20140225
  Receipt Date: 20140225
  Transmission Date: 20141002
  Serious: Yes (Other)
  Sender: FDA-Public Use
  Company Number: DE-MYLANLABS-2014S1003391

PATIENT
  Age: 9 Year
  Sex: Female
  Weight: 20 kg

DRUGS (1)
  1. CITALOPRAM [Suspect]
     Route: 048
     Dates: start: 201402, end: 201402

REACTIONS (2)
  - Accidental exposure to product by child [Unknown]
  - Vomiting [Unknown]
